FAERS Safety Report 16881229 (Version 1)
Quarter: 2019Q4

REPORT INFORMATION
  Report Type: Spontaneous
  Country: JP (occurrence: JP)
  Receive Date: 20191003
  Receipt Date: 20191003
  Transmission Date: 20200122
  Serious: Yes (Hospitalization, Other)
  Sender: FDA-Public Use
  Company Number: JP-OTSUKA-2019_033972

PATIENT
  Sex: Male

DRUGS (5)
  1. RISPERIDONE. [Concomitant]
     Active Substance: RISPERIDONE
     Indication: SCHIZOPHRENIA
     Dosage: 12 MG, UNK
     Route: 048
  2. ABILIFY [Suspect]
     Active Substance: ARIPIPRAZOLE
     Dosage: 30 MG, UNK
     Route: 048
  3. ZYPREXA [Concomitant]
     Active Substance: OLANZAPINE
     Indication: SCHIZOPHRENIA
     Dosage: UNK
     Route: 048
  4. LONASEN [Concomitant]
     Active Substance: BLONANSERIN
     Indication: SCHIZOPHRENIA
     Dosage: UNK
     Route: 048
  5. ABILIFY [Suspect]
     Active Substance: ARIPIPRAZOLE
     Indication: SCHIZOPHRENIA
     Dosage: 24 MG, UNK
     Route: 048

REACTIONS (3)
  - Increased appetite [Unknown]
  - Weight increased [Unknown]
  - Diabetes mellitus [Unknown]
